FAERS Safety Report 21984243 (Version 2)
Quarter: 2023Q1

REPORT INFORMATION
  Report Type: Other
  Country: US (occurrence: None)
  Receive Date: 20230213
  Receipt Date: 20230215
  Transmission Date: 20230417
  Serious: Yes (Other)
  Sender: FDA-Public Use
  Company Number: US-ROCHE-3282281

PATIENT
  Age: 71 Year
  Sex: Female

DRUGS (8)
  1. OCREVUS [Suspect]
     Active Substance: OCRELIZUMAB
     Indication: Relapsing multiple sclerosis
     Dosage: DATE OF MOST RECENT INFUSION: 11/JAN/2023, DATE OF NEXT SCHEDULED INFUSION: 11/JUL/2023?DATE OF TREA
     Route: 065
  2. OCREVUS [Suspect]
     Active Substance: OCRELIZUMAB
     Route: 065
  3. ARMOUR THYROID [Concomitant]
     Active Substance: THYROID, PORCINE
     Route: 048
  4. CEFUROXIME AXETIL [Concomitant]
     Active Substance: CEFUROXIME AXETIL
     Dosage: TWICE IN A DAY FOR 7 DAYS
     Route: 048
  5. CITALOPRAM [Concomitant]
     Active Substance: CITALOPRAM HYDROBROMIDE
     Route: 048
  6. DONEPEZIL [Concomitant]
     Active Substance: DONEPEZIL
     Route: 048
  7. FOSFOMYCIN TROMETHAMINE [Concomitant]
     Active Substance: FOSFOMYCIN TROMETHAMINE
     Route: 048
  8. GABAPENTIN [Concomitant]
     Active Substance: GABAPENTIN
     Route: 048

REACTIONS (11)
  - Compression fracture [Unknown]
  - Pollakiuria [Unknown]
  - Fall [Unknown]
  - Hypoacusis [Unknown]
  - Contusion [Unknown]
  - Pain [Unknown]
  - JC polyomavirus test positive [Unknown]
  - Dementia [Unknown]
  - Vitamin D deficiency [Unknown]
  - Amnesia [Unknown]
  - Peripheral swelling [Unknown]
